FAERS Safety Report 6437969-X (Version None)
Quarter: 2009Q4

REPORT INFORMATION
  Report Type: 
  Country: None (occurrence: None)
  Receive Date: 20091112
  Receipt Date: 20081008
  Transmission Date: 20100525
  Serious: No
  Sender: FDA-Public Use
  Company Number: US-ASTRAZENECA-2009UW15442

PATIENT
  Age: 76 Year
  Sex: Female

DRUGS (3)
  1. PRILOSEC OTC [Suspect]
     Dates: start: 20081008, end: 20081008
  2. BLOOD THINNERS [Concomitant]
  3. CHOLESTEROL- AND TRIGLYCERIDE REDUCERS [Concomitant]

REACTIONS (2)
  - INJURY [None]
  - SKIN LACERATION [None]
